FAERS Safety Report 9829357 (Version 4)
Quarter: 2014Q2

REPORT INFORMATION
  Report Type: Spontaneous
  Country: US (occurrence: US)
  Receive Date: 20140120
  Receipt Date: 20140604
  Transmission Date: 20141212
  Serious: No
  Sender: FDA-Public Use
  Company Number: US-B.I. PHARMACEUTICALS,INC./RIDGEFIELD-2014-BI-01156BP

PATIENT
  Age: 81 Year
  Sex: Female

DRUGS (9)
  1. PRADAXA [Suspect]
     Indication: ATRIAL FIBRILLATION
     Dosage: 300 MG
     Route: 048
     Dates: start: 201004
  2. PROPRANAZOLE [Concomitant]
     Route: 048
  3. THYROID MEDICATION [Concomitant]
     Indication: THYROID DISORDER
     Route: 048
  4. ARMOUR [Concomitant]
     Indication: HYPOTHYROIDISM
     Dosage: 60 MG
     Route: 048
  5. PANTOPRAZOLE [Concomitant]
     Indication: OESOPHAGEAL PAIN
     Dosage: 40 MG
     Route: 048
  6. ATENOLOL [Concomitant]
     Indication: HYPERTENSION
     Dosage: 25 MG
     Route: 048
  7. CARDIZEM [Concomitant]
     Indication: ATRIAL FIBRILLATION
     Dosage: 240 MG
     Route: 048
  8. VITAMIN D2 [Concomitant]
     Indication: SUPPLEMENTATION THERAPY
     Dosage: 1 ANZ
     Route: 048
  9. FORTEO [Concomitant]
     Indication: OSTEOPOROSIS
     Dosage: 600 MCG
     Route: 058
     Dates: start: 201210

REACTIONS (5)
  - Oesophageal pain [Not Recovered/Not Resolved]
  - Dysgeusia [Not Recovered/Not Resolved]
  - Nausea [Not Recovered/Not Resolved]
  - Oedema peripheral [Not Recovered/Not Resolved]
  - Product quality issue [Unknown]
